FAERS Safety Report 9111047 (Version 1)
Quarter: 2013Q1

REPORT INFORMATION
  Report Type: Spontaneous
  Country: US (occurrence: US)
  Receive Date: 20130219
  Receipt Date: 20130219
  Transmission Date: 20140127
  Serious: No
  Sender: FDA-Public Use
  Company Number: US-BRISTOL-MYERS SQUIBB COMPANY-16977811

PATIENT
  Age: 76 Year
  Sex: Female
  Weight: 52.15 kg

DRUGS (1)
  1. ORENCIA [Suspect]
     Indication: RHEUMATOID ARTHRITIS
     Dosage: 4 YEARS AGO.LAST INF: NOV2011
     Route: 042

REACTIONS (1)
  - Psoriasis [Unknown]
